FAERS Safety Report 24133123 (Version 1)
Quarter: 2024Q3

REPORT INFORMATION
  Report Type: Spontaneous
  Country: US (occurrence: US)
  Receive Date: 20240724
  Receipt Date: 20240724
  Transmission Date: 20241016
  Serious: No
  Sender: MARINUS PHARMACEUTICALS
  Company Number: US-MARINUS PHARMACEUTICALS, INC.-MAR2024000137

PATIENT

DRUGS (1)
  1. ZTALMY [Suspect]
     Active Substance: GANAXOLONE
     Indication: Product used for unknown indication
     Dosage: TK 10ML MORNING, 12ML BEFORE LUNCH, 12ML ML NIGHTLY
     Route: 048

REACTIONS (1)
  - Muscle contracture [Unknown]

NARRATIVE: CASE EVENT DATE: 20240101
